FAERS Safety Report 21384317 (Version 5)
Quarter: 2023Q2

REPORT INFORMATION
  Report Type: Report from Study
  Country: CN (occurrence: CN)
  Receive Date: 20220928
  Receipt Date: 20230605
  Transmission Date: 20230721
  Serious: No
  Sender: FDA-Public Use
  Company Number: CN-NOVARTISPH-NVSC2022CN020633

PATIENT
  Age: 35 Year
  Sex: Female
  Weight: 51.5 kg

DRUGS (12)
  1. GILENYA [Suspect]
     Active Substance: FINGOLIMOD HYDROCHLORIDE
     Indication: Relapsing multiple sclerosis
     Dosage: UNK
     Route: 048
     Dates: start: 20210617
  2. CIMETIDINE [Concomitant]
     Active Substance: CIMETIDINE
     Indication: Gastrointestinal disorder prophylaxis
     Dosage: UNK
     Route: 065
     Dates: start: 20210709, end: 20210709
  3. CIMETIDINE [Concomitant]
     Active Substance: CIMETIDINE
     Indication: Gastroenteritis
     Dosage: UNK
     Route: 065
     Dates: start: 20210711, end: 20210712
  4. VITAMIN B6 [Concomitant]
     Active Substance: PYRIDOXINE HYDROCHLORIDE
     Indication: Vitamin supplementation
     Dosage: UNK
     Route: 065
     Dates: start: 20210709, end: 20210709
  5. RACEANISODAMINE HYDROCHLORIDE [Concomitant]
     Indication: Gastroenteritis
     Dosage: UNK
     Route: 065
     Dates: start: 20210709, end: 20210709
  6. RACEANISODAMINE [Concomitant]
     Active Substance: RACEANISODAMINE
     Indication: Gastroenteritis
     Dosage: UNK
     Route: 065
     Dates: start: 20210709, end: 20210709
  7. ORYZANOL [Concomitant]
     Active Substance: GAMMA ORYZANOL
     Indication: Vitamin supplementation
     Dosage: UNK
     Route: 065
     Dates: start: 20210709, end: 20210709
  8. DYDROGESTERONE [Concomitant]
     Active Substance: DYDROGESTERONE
     Indication: Uterine polyp
     Dosage: UNK
     Route: 065
     Dates: start: 20210208, end: 20210716
  9. VITAMIN B COMPLEX [Concomitant]
     Active Substance: CYANOCOBALAMIN\DEXPANTHENOL\NIACINAMIDE\PYRIDOXINE HYDROCHLORIDE\RIBOFLAVIN 5^-PHOSPHATE SODIUM\THIA
     Indication: Vitamin supplementation
     Dosage: UNK
     Route: 065
     Dates: start: 20210617
  10. CHLORPHENIRAMINE MALEATE [Concomitant]
     Active Substance: CHLORPHENIRAMINE MALEATE
     Indication: Urticaria
     Dosage: INJECTION
     Route: 065
     Dates: start: 20210711, end: 20210711
  11. CHLORPHENIRAMINE MALEATE [Concomitant]
     Active Substance: CHLORPHENIRAMINE MALEATE
     Dosage: TABLET
     Route: 065
     Dates: start: 20210711, end: 20210712
  12. CALCIUM\ERGOCALCIFEROL [Concomitant]
     Active Substance: CALCIUM\ERGOCALCIFEROL
     Indication: Urticaria
     Dosage: UNK
     Route: 065
     Dates: start: 20210711, end: 20210711

REACTIONS (1)
  - Lymphocyte count decreased [Recovered/Resolved]

NARRATIVE: CASE EVENT DATE: 20210716
